FAERS Safety Report 25871717 (Version 1)
Quarter: 2025Q4

REPORT INFORMATION
  Report Type: Spontaneous
  Country: GB (occurrence: GB)
  Receive Date: 20251001
  Receipt Date: 20251001
  Transmission Date: 20260118
  Serious: Yes (Other)
  Sender: HETERO
  Company Number: None

PATIENT
  Age: 61 Year
  Sex: Female
  Weight: 80 kg

DRUGS (2)
  1. CITALOPRAM [Suspect]
     Active Substance: CITALOPRAM
     Indication: Menopausal depression
     Dosage: 10 MILLIGRAM, Q.A.M.
     Route: 065
     Dates: start: 20250903, end: 20250916
  2. TAMOXIFEN [Concomitant]
     Active Substance: TAMOXIFEN
     Indication: Breast cancer stage II
     Dosage: UNK
     Route: 065
     Dates: start: 20250105

REACTIONS (5)
  - Heart rate irregular [Recovering/Resolving]
  - Chest discomfort [Not Recovered/Not Resolved]
  - Palpitations [Recovering/Resolving]
  - Cough [Not Recovered/Not Resolved]
  - Palpitations [Recovering/Resolving]

NARRATIVE: CASE EVENT DATE: 20250906
